FAERS Safety Report 5842926-8 (Version None)
Quarter: 2008Q3

REPORT INFORMATION
  Report Type: 
  Country: None (occurrence: None)
  Receive Date: 20080811
  Receipt Date: 20080725
  Transmission Date: 20090109
  Serious: Yes (Hospitalization, Other)
  Sender: FDA-Public Use
  Company Number: 2008US001977

PATIENT
  Age: 57 Year
  Sex: Male

DRUGS (8)
  1. VESICARE [Suspect]
     Indication: HYPERTONIC BLADDER
     Dosage: 5 MG, UID/QD, ORAL 10 MG, UID/QD, ORAL
     Route: 048
     Dates: start: 20070701, end: 20080401
  2. VESICARE [Suspect]
     Indication: HYPERTONIC BLADDER
     Dosage: 5 MG, UID/QD, ORAL 10 MG, UID/QD, ORAL
     Route: 048
     Dates: start: 20080401, end: 20080701
  3. VESICARE [Suspect]
     Indication: HYPERTONIC BLADDER
     Dosage: 5 MG, UID/QD, ORAL 10 MG, UID/QD, ORAL
     Route: 048
     Dates: start: 20080703, end: 20080706
  4. VESICARE [Suspect]
     Indication: HYPERTONIC BLADDER
     Dosage: 5 MG, UID/QD, ORAL 10 MG, UID/QD, ORAL
     Route: 048
     Dates: start: 20080706
  5. ENABLEX [Suspect]
     Indication: DRUG USE FOR UNKNOWN INDICATION
     Dates: start: 20080717, end: 20080719
  6. TASIGNA (NILOTINIB) [Concomitant]
  7. SINGULAIR [Concomitant]
  8. SOTALOL HCL [Concomitant]

REACTIONS (11)
  - CARDIAC ARREST [None]
  - CHEST PAIN [None]
  - CONDITION AGGRAVATED [None]
  - DEHYDRATION [None]
  - DRUG INEFFECTIVE [None]
  - LEUKAEMIA [None]
  - MALAISE [None]
  - NOCTURIA [None]
  - PALPITATIONS [None]
  - RHINITIS [None]
  - STAPHYLOCOCCAL INFECTION [None]
